FAERS Safety Report 4370244-6 (Version None)
Quarter: 2004Q2

REPORT INFORMATION
  Report Type: 
  Country: None (occurrence: None)
  Receive Date: 20040603
  Receipt Date: 20040325
  Transmission Date: 20050107
  Serious: No
  Sender: FDA-Public Use
  Company Number: US-BRISTOL-MYERS SQUIBB COMPANY-12542437

PATIENT
  Sex: Male

DRUGS (3)
  1. ABILIFY [Suspect]
     Indication: PSYCHOTIC DISORDER
     Dosage: 15 MG TAB 1/PER DAY; D/C BY PT; TITRATED TO 22.5 MG/DAY; RED. TO 10 MG, TAB 1/PER DAY
     Route: 048
  2. COGENTIN [Concomitant]
  3. SEROQUEL [Concomitant]

REACTIONS (1)
  - EXTRAPYRAMIDAL DISORDER [None]
